FAERS Safety Report 6016359-8 (Version None)
Quarter: 2008Q4

REPORT INFORMATION
  Report Type: 
  Country: None (occurrence: None)
  Receive Date: 20081222
  Receipt Date: 20081216
  Transmission Date: 20090506
  Serious: Yes (Other)
  Sender: FDA-Public Use
  Company Number: US-JNJFOC-20081204855

PATIENT
  Sex: Female
  Weight: 44.45 kg

DRUGS (26)
  1. DURAGESIC-100 [Suspect]
     Indication: SYSTEMIC LUPUS ERYTHEMATOSUS
     Route: 062
  2. DURAGESIC-100 [Suspect]
     Indication: PAIN
     Route: 062
  3. CALCIUM/ VITAMIN D [Concomitant]
     Indication: OSTEOPOROSIS
     Dosage: DOSE: 600/400
     Route: 048
  4. ESTRADIOL [Concomitant]
     Indication: OSTEOPOROSIS
     Route: 048
  5. ACTONEL [Concomitant]
     Indication: OSTEOPOROSIS
     Route: 048
  6. PREDNISONE TAB [Concomitant]
     Indication: SYSTEMIC LUPUS ERYTHEMATOSUS
     Route: 048
  7. AZATHIOPRINE [Concomitant]
     Indication: SYSTEMIC LUPUS ERYTHEMATOSUS
     Route: 048
  8. TRAZODONE [Concomitant]
     Indication: SLEEP DISORDER
     Route: 048
  9. HALCION [Concomitant]
     Indication: SLEEP DISORDER
     Route: 048
  10. AMBIEN [Concomitant]
     Indication: SLEEP DISORDER
     Route: 048
  11. SERTRALINE [Concomitant]
     Indication: DEPRESSION
     Route: 048
  12. SYNTHROID [Concomitant]
     Indication: HYPOTHYROIDISM
     Route: 048
  13. PROTONIX [Concomitant]
     Indication: GASTROOESOPHAGEAL REFLUX DISEASE
     Route: 048
  14. CREON [Concomitant]
     Indication: PANCREATITIS
     Route: 048
  15. SENOKOT [Concomitant]
     Indication: IRRITABLE BOWEL SYNDROME
     Route: 048
  16. MIRALAX [Concomitant]
     Indication: IRRITABLE BOWEL SYNDROME
     Route: 065
  17. PHENOBARBITAL [Concomitant]
     Route: 048
  18. PHENOBARBITAL [Concomitant]
     Indication: EPILEPSY
     Route: 048
  19. KEPPRA [Concomitant]
     Indication: EPILEPSY
     Route: 048
  20. FOLIC ACID [Concomitant]
     Route: 048
  21. TOPROL-XL [Concomitant]
     Indication: SUPRAVENTRICULAR TACHYCARDIA
     Route: 048
  22. DIGITEK [Concomitant]
     Indication: CARDIAC DISORDER
     Route: 048
  23. POTASSIUM CHLORIDE [Concomitant]
     Route: 048
  24. FUROSEMIDE [Concomitant]
     Indication: OEDEMA
     Route: 048
  25. ASPIRIN [Concomitant]
     Route: 048
  26. URSADIOL [Concomitant]
     Indication: PANCREATITIS
     Route: 048

REACTIONS (7)
  - CHEST PAIN [None]
  - COLD SWEAT [None]
  - DRUG INEFFECTIVE [None]
  - DYSPNOEA [None]
  - INCORRECT DRUG ADMINISTRATION DURATION [None]
  - MALAISE [None]
  - TREMOR [None]
